FAERS Safety Report 5087753-7 (Version None)
Quarter: 2006Q3

REPORT INFORMATION
  Report Type: 
  Country: None (occurrence: None)
  Receive Date: 20060822
  Receipt Date: 20060822
  Transmission Date: 20061208
  Serious: Yes (Hospitalization)
  Sender: FDA-Public Use
  Company Number: None

PATIENT
  Age: 75 Year
  Sex: Male
  Weight: 88.4514 kg

DRUGS (1)
  1. LORATADINE [Suspect]
     Indication: POSTNASAL DRIP
     Dosage: 1  DAILY

REACTIONS (4)
  - ASTHENIA [None]
  - BLOOD DISORDER [None]
  - OEDEMA PERIPHERAL [None]
  - PYREXIA [None]
